FAERS Safety Report 7992683-4 (Version None)
Quarter: 2011Q4

REPORT INFORMATION
  Report Type: 
  Country: None (occurrence: None)
  Receive Date: 20111219
  Receipt Date: 20110722
  Transmission Date: 20120403
  Serious: No
  Sender: FDA-Public Use
  Company Number: US-ASTRAZENECA-2011SE44103

PATIENT
  Age: 784 Month
  Sex: Male
  Weight: 90.7 kg

DRUGS (3)
  1. CRESTOR [Suspect]
     Route: 048
     Dates: start: 20100601
  2. NIASPAN [Concomitant]
  3. NAPROXEN (ALEVE) [Concomitant]

REACTIONS (1)
  - BACK PAIN [None]
